FAERS Safety Report 24628858 (Version 1)
Quarter: 2024Q4

REPORT INFORMATION
  Report Type: Spontaneous
  Country: CN (occurrence: CN)
  Receive Date: 20241118
  Receipt Date: 20241118
  Transmission Date: 20250115
  Serious: Yes (Other)
  Sender: ABBVIE
  Company Number: CN-ABBVIE-6001552

PATIENT
  Age: 44 Year
  Sex: Female
  Weight: 55 kg

DRUGS (3)
  1. LOPINAVIR\RITONAVIR [Suspect]
     Active Substance: LOPINAVIR\RITONAVIR
     Indication: Acquired immunodeficiency syndrome
     Dosage: 4 TABLET
     Route: 048
     Dates: start: 20190723, end: 20241030
  2. ZIDOVUDINE [Concomitant]
     Active Substance: ZIDOVUDINE
     Indication: Acquired immunodeficiency syndrome
     Dates: start: 20190723
  3. LAMIVUDINE [Concomitant]
     Active Substance: LAMIVUDINE
     Indication: Acquired immunodeficiency syndrome
     Dates: start: 20190723

REACTIONS (2)
  - Liver injury [Unknown]
  - Blood bilirubin increased [Unknown]

NARRATIVE: CASE EVENT DATE: 20241030
